FAERS Safety Report 24095586 (Version 1)
Quarter: 2024Q3

REPORT INFORMATION
  Report Type: Report from Study
  Country: BR (occurrence: None)
  Receive Date: 20240716
  Receipt Date: 20240716
  Transmission Date: 20241017
  Serious: Yes (Other)
  Sender: ASTRAZENECA
  Company Number: 2024A160031

PATIENT
  Age: 71 Year
  Sex: Male

DRUGS (6)
  1. ROSUVASTATIN [Suspect]
     Active Substance: ROSUVASTATIN
     Route: 048
  2. DAPAGLIFLOZIN [Suspect]
     Active Substance: DAPAGLIFLOZIN
     Indication: Myocardial infarction
     Dosage: USES 2 DOSES10.0MG UNKNOWN
     Route: 048
     Dates: start: 202401
  3. DAPAGLIFLOZIN [Suspect]
     Active Substance: DAPAGLIFLOZIN
     Indication: Diabetes mellitus
     Dosage: USES 2 DOSES10.0MG UNKNOWN
     Route: 048
     Dates: start: 202401
  4. LOSARTAN [Concomitant]
     Active Substance: LOSARTAN
  5. CARVEDILOL [Concomitant]
     Active Substance: CARVEDILOL
  6. HALOPERIDOL [Concomitant]
     Active Substance: HALOPERIDOL

REACTIONS (6)
  - Infarction [Unknown]
  - Hypertension [Unknown]
  - Diabetes mellitus [Unknown]
  - Anxiety [Unknown]
  - Blood pressure increased [Unknown]
  - Malaise [Unknown]
